FAERS Safety Report 25458059 (Version 3)
Quarter: 2025Q4

REPORT INFORMATION
  Report Type: Spontaneous
  Country: US (occurrence: US)
  Receive Date: 20250620
  Receipt Date: 20251106
  Transmission Date: 20260118
  Serious: Yes (Other)
  Sender: Haleon PLC
  Company Number: US-HALEON-2247733

PATIENT
  Age: 44 Year
  Sex: Female
  Weight: 82.554 kg

DRUGS (1)
  1. SENSODYNE PRONAMEL INTENSIVE ENAMEL REPAIR WHITENING [Suspect]
     Active Substance: POTASSIUM NITRATE\SODIUM FLUORIDE
     Indication: Product used for unknown indication
     Dosage: BRUSHED TEETH, TWICE A DAY, MORNING, EVENING
     Dates: start: 20250530, end: 20250615

REACTIONS (5)
  - Product contamination microbial [Unknown]
  - Vomiting [Unknown]
  - Exposure to fungus [Recovered/Resolved]
  - Poor quality product administered [Unknown]
  - Illness [Recovered/Resolved]

NARRATIVE: CASE EVENT DATE: 20250615
